FAERS Safety Report 8131805-1 (Version None)
Quarter: 2012Q1

REPORT INFORMATION
  Report Type: 
  Country: None (occurrence: None)
  Receive Date: 20120103
  Receipt Date: 20111122
  Transmission Date: 20120608
  Serious: No
  Sender: FDA-Public Use
  Company Number: AE-2011-003894

PATIENT
  Age: 55 Year
  Sex: Female
  Weight: 63.5036 kg

DRUGS (6)
  1. INCIVEK [Suspect]
     Dosage: 2250 MG (750 MG,1 IN 8 HR),ORAL
     Route: 048
     Dates: start: 20111111
  2. PAMELOR [Concomitant]
  3. CLONAZEPAM [Concomitant]
  4. PEGASYS [Concomitant]
  5. RIBAVIRIN [Concomitant]
  6. SYNTHROID [Concomitant]

REACTIONS (1)
  - RASH PRURITIC [None]
